FAERS Safety Report 13632126 (Version 1)
Quarter: 2017Q2

REPORT INFORMATION
  Report Type: Spontaneous
  Country: US (occurrence: US)
  Receive Date: 20170531
  Receipt Date: 20170531
  Transmission Date: 20170830
  Serious: No
  Sender: FDA-Public Use
  Company Number: US-ASTELLAS-1441366

PATIENT
  Sex: Male

DRUGS (2)
  1. MEGESTROL [Concomitant]
     Active Substance: MEGESTROL
  2. TARCEVA [Suspect]
     Active Substance: ERLOTINIB HYDROCHLORIDE
     Indication: PANCREATIC CARCINOMA
     Route: 048
     Dates: start: 20140607

REACTIONS (2)
  - Hunger [Unknown]
  - Dyspepsia [Unknown]
